FAERS Safety Report 7600792-4 (Version None)
Quarter: 2011Q3

REPORT INFORMATION
  Report Type: 
  Country: None (occurrence: None)
  Receive Date: 20110711
  Receipt Date: 20110616
  Transmission Date: 20111222
  Serious: No
  Sender: FDA-Public Use
  Company Number: US-ROXANE LABORATORIES, INC.-2011-RO-00967RO

PATIENT
  Sex: Female

DRUGS (1)
  1. MORPHINE [Suspect]
     Indication: PAIN
     Route: 048
     Dates: start: 20110616

REACTIONS (1)
  - NAUSEA [None]
